FAERS Safety Report 7716690-1 (Version None)
Quarter: 2011Q3

REPORT INFORMATION
  Report Type: 
  Country: None (occurrence: None)
  Receive Date: 20110829
  Receipt Date: 20110820
  Transmission Date: 20111222
  Serious: Yes (Other)
  Sender: FDA-Public Use
  Company Number: US-JNJFOC-20110800866

PATIENT
  Sex: Male
  Weight: 87.09 kg

DRUGS (2)
  1. REMICADE [Suspect]
     Indication: CROHN'S DISEASE
     Route: 042
     Dates: start: 20110501
  2. REMICADE [Suspect]
     Indication: ANKYLOSING SPONDYLITIS
     Route: 042
     Dates: start: 20110501

REACTIONS (5)
  - TONGUE DISCOLOURATION [None]
  - GASTROINTESTINAL INFECTION [None]
  - FEELING ABNORMAL [None]
  - DYSPHAGIA [None]
  - TONGUE DISORDER [None]
